FAERS Safety Report 23087005 (Version 2)
Quarter: 2023Q4

REPORT INFORMATION
  Report Type: Report from Study
  Country: US (occurrence: US)
  Receive Date: 20231020
  Receipt Date: 20231120
  Transmission Date: 20240109
  Serious: Yes (Hospitalization, Other)
  Sender: FDA-Public Use
  Company Number: US-ABBVIE-5457475

PATIENT
  Age: 48 Year
  Sex: Male

DRUGS (1)
  1. VENCLEXTA [Suspect]
     Active Substance: VENETOCLAX
     Indication: B-cell small lymphocytic lymphoma
     Dosage: TOOK FOUR TABLETS BY MOUTH ONCE DAILY WITH FOOD AND A FULL GLASS?OF WATER?FORM STRENGTH: 100 MILL...
     Route: 048
     Dates: end: 202309

REACTIONS (2)
  - Neoplasm [Unknown]
  - Hospitalisation [Unknown]

NARRATIVE: CASE EVENT DATE: 20231115
